FAERS Safety Report 6065662-4 (Version None)
Quarter: 2009Q1

REPORT INFORMATION
  Report Type: 
  Country: None (occurrence: None)
  Receive Date: 20090130
  Receipt Date: 20090119
  Transmission Date: 20090719
  Serious: Yes (Hospitalization, Disabling)
  Sender: FDA-Public Use
  Company Number: US023964

PATIENT
  Age: 67 Year
  Sex: Female

DRUGS (3)
  1. TRISENOX [Suspect]
     Indication: ACUTE PROMYELOCYTIC LEUKAEMIA
     Dosage: 5.85 MG QD INTRAVENOUS DRIP
     Route: 041
     Dates: start: 20080221, end: 20080313
  2. POTASSIUM /00021402/ [Concomitant]
  3. MAGNESIUM /00123201/ [Concomitant]

REACTIONS (8)
  - CYTOMEGALOVIRUS TEST POSITIVE [None]
  - DIALYSIS [None]
  - DISEASE PROGRESSION [None]
  - ELECTROCARDIOGRAM QT PROLONGED [None]
  - HYPOKALAEMIA [None]
  - HYPOMAGNESAEMIA [None]
  - INTESTINAL OBSTRUCTION [None]
  - RENAL FAILURE [None]
